FAERS Safety Report 9260134 (Version 1)
Quarter: 2013Q2

REPORT INFORMATION
  Report Type: Report from Study
  Country: BR (occurrence: BR)
  Receive Date: 20130429
  Receipt Date: 20130429
  Transmission Date: 20140414
  Serious: Yes (Hospitalization)
  Sender: FDA-Public Use
  Company Number: PHHY2012BR128282

PATIENT
  Age: 74 Year
  Sex: Male

DRUGS (2)
  1. BUDESONIDE, FORMOTEROL FUMARATE [Suspect]
     Indication: CHRONIC OBSTRUCTIVE PULMONARY DISEASE
     Dosage: UNK UKN, BID
  2. A/H1N1 INFLUENZA PANDEMIC VACCINE [Suspect]
     Dosage: UNK UKN, UNK

REACTIONS (4)
  - Dyspnoea [Recovered/Resolved]
  - Painful respiration [Recovered/Resolved]
  - Chest pain [Recovered/Resolved]
  - Bronchiectasis [Unknown]
